FAERS Safety Report 18049423 (Version 1)
Quarter: 2020Q3

REPORT INFORMATION
  Report Type: Spontaneous
  Country: US (occurrence: US)
  Receive Date: 20200721
  Receipt Date: 20200721
  Transmission Date: 20201103
  Serious: Yes (Other)
  Sender: FDA-Public Use
  Company Number: None

PATIENT
  Age: 59 Year
  Sex: Male

DRUGS (1)
  1. INLYTA [Suspect]
     Active Substance: AXITINIB
     Indication: RENAL CELL CARCINOMA
     Dates: start: 20191101, end: 20200131

REACTIONS (4)
  - Fatigue [None]
  - Mobility decreased [None]
  - Loss of personal independence in daily activities [None]
  - Decreased appetite [None]

NARRATIVE: CASE EVENT DATE: 20191115
